FAERS Safety Report 5267778-9 (Version None)
Quarter: 2007Q1

REPORT INFORMATION
  Report Type: 
  Country: None (occurrence: None)
  Receive Date: 20070316
  Receipt Date: 20070305
  Transmission Date: 20070707
  Serious: Yes (Other)
  Sender: FDA-Public Use
  Company Number: US-PFIZER INC-2007017670

PATIENT
  Sex: Female
  Weight: 59 kg

DRUGS (3)
  1. GEODON [Suspect]
     Indication: PSYCHOTIC DISORDER
     Dates: start: 20051001, end: 20060331
  2. GEODON [Suspect]
     Indication: MANIA
  3. THYROID HORMONES [Concomitant]

REACTIONS (3)
  - CONSTIPATION [None]
  - SUICIDAL IDEATION [None]
  - WEIGHT DECREASED [None]
